FAERS Safety Report 9037568 (Version 3)
Quarter: 2013Q1

REPORT INFORMATION
  Report Type: Spontaneous
  Country: US (occurrence: US)
  Receive Date: 20130129
  Receipt Date: 20130312
  Transmission Date: 20140127
  Serious: No
  Sender: FDA-Public Use
  Company Number: US-009507513-1207USA005285

PATIENT
  Age: 26 Year
  Sex: Female
  Weight: 106.12 kg

DRUGS (2)
  1. IMPLANON [Suspect]
     Indication: CONTRACEPTION
     Dosage: UNK
     Route: 058
     Dates: start: 20090716
  2. DEPO-PROVERA [Concomitant]

REACTIONS (3)
  - Weight decreased [Unknown]
  - Medical device complication [Unknown]
  - Incorrect drug administration duration [Unknown]
